FAERS Safety Report 7150770-7 (Version None)
Quarter: 2010Q4

REPORT INFORMATION
  Report Type: 
  Country: None (occurrence: None)
  Receive Date: 20101126
  Receipt Date: 20101116
  Transmission Date: 20110411
  Serious: Yes (Hospitalization)
  Sender: FDA-Public Use
  Company Number: 2010P1002669

PATIENT
  Age: 68 Year
  Sex: Male

DRUGS (4)
  1. METFORMIN (NO PREF. NAME) [Suspect]
     Indication: DIABETES MELLITUS
     Dosage: (500 MG; BID) (850 MG; BID)
  2. METFORMIN (NO PREF. NAME) [Suspect]
     Indication: DIABETES MELLITUS
     Dosage: (500 MG; BID) (850 MG; BID)
  3. ASPIRIN [Concomitant]
  4. MULTI-VITAMINS [Concomitant]

REACTIONS (4)
  - HAEMOGLOBIN DECREASED [None]
  - HEPATITIS CHOLESTATIC [None]
  - HEPATOTOXICITY [None]
  - PROTHROMBIN TIME SHORTENED [None]
